FAERS Safety Report 21401644 (Version 1)
Quarter: 2022Q4

REPORT INFORMATION
  Report Type: Report from Study
  Country: EG (occurrence: EG)
  Receive Date: 20221003
  Receipt Date: 20221003
  Transmission Date: 20230113
  Serious: Yes (Other)
  Sender: FDA-Public Use
  Company Number: EG-NOVARTISPH-NVSC2022EG222366

PATIENT
  Sex: Male

DRUGS (1)
  1. GILENYA [Suspect]
     Active Substance: FINGOLIMOD HYDROCHLORIDE
     Indication: Multiple sclerosis
     Dosage: 1 DOSAGE FORM (ALMOST (APR 2022) (PER PATIENT WORDS) (END 1 MONTH AGO)
     Route: 048

REACTIONS (3)
  - Deep vein thrombosis [Unknown]
  - Eye disorder [Unknown]
  - Limb discomfort [Unknown]
